FAERS Safety Report 5974040-5 (Version None)
Quarter: 2008Q4

REPORT INFORMATION
  Report Type: 
  Country: None (occurrence: None)
  Receive Date: 20081201
  Receipt Date: 20080124
  Transmission Date: 20090506
  Serious: No
  Sender: FDA-Public Use
  Company Number: US-AMGEN-KDL260374

PATIENT
  Sex: Female

DRUGS (2)
  1. ENBREL [Suspect]
     Indication: SARCOIDOSIS
     Route: 058
     Dates: start: 20080101
  2. PLAQUENIL [Concomitant]
     Route: 048
     Dates: start: 20000101

REACTIONS (12)
  - ASTHENOPIA [None]
  - BURNING SENSATION [None]
  - CHEST DISCOMFORT [None]
  - DRY EYE [None]
  - INFLUENZA LIKE ILLNESS [None]
  - INJECTION SITE HAEMORRHAGE [None]
  - MYALGIA [None]
  - OEDEMA PERIPHERAL [None]
  - PAIN [None]
  - RHINITIS [None]
  - RHINORRHOEA [None]
  - SINUS HEADACHE [None]
